FAERS Safety Report 4788260-9 (Version None)
Quarter: 2005Q4

REPORT INFORMATION
  Report Type: 
  Country: None (occurrence: None)
  Receive Date: 20051003
  Receipt Date: 20050926
  Transmission Date: 20060501
  Serious: Yes (Life-Threatening)
  Sender: FDA-Public Use
  Company Number: 2005-132930-NL

PATIENT
  Age: 20 Year
  Sex: Female

DRUGS (3)
  1. VECURONIUM BROMIDE [Suspect]
     Indication: ANAESTHESIA
     Dosage: 8 MG ONCE, INTRAVENOUS BOLUS
     Route: 040
     Dates: start: 20050905, end: 20050905
  2. FENTANYL [Concomitant]
  3. THIOPENTAL SODIUM [Concomitant]

REACTIONS (3)
  - AIRWAY COMPLICATION OF ANAESTHESIA [None]
  - HYPOTENSION [None]
  - PULSE ABSENT [None]
